FAERS Safety Report 4449243-1 (Version None)
Quarter: 2004Q3

REPORT INFORMATION
  Report Type: 
  Country: None (occurrence: None)
  Receive Date: 20040910
  Receipt Date: 20040907
  Transmission Date: 20050211
  Serious: Yes (Other)
  Sender: FDA-Public Use
  Company Number: TCI2003A04339

PATIENT
  Age: 74 Year
  Sex: Female

DRUGS (1)
  1. TAKEPRON OD TABLETS 15 (LANSOPRAZOLE) (TABLETS) [Suspect]
     Indication: REFLUX OESOPHAGITIS
     Dosage: 15 MG (15 MG, 1 IN 1 D) PER ORAL
     Route: 048
     Dates: start: 20031124, end: 20031124

REACTIONS (2)
  - HEADACHE [None]
  - VISUAL DISTURBANCE [None]
